FAERS Safety Report 8601456 (Version 4)
Quarter: 2012Q4

REPORT INFORMATION
  Report Type: 
  Country: US (occurrence: US)
  Receive Date: 20120606
  Receipt Date: 20120928
  Transmission Date: 20130627
  Serious: Yes (Other)
  Sender: FDA-Public Use
  Company Number: US-PFIZER INC-2012132198

PATIENT
  Age: 86 Year
  Sex: Female

DRUGS (2)
  1. XALATAN [Suspect]
     Dosage: UNK
  2. XALATAN [Suspect]
     Dosage: UNK

REACTIONS (8)
  - Hip fracture [Unknown]
  - Fall [Unknown]
  - Movement disorder [Unknown]
  - Hernia [Unknown]
  - Alopecia areata [Unknown]
  - Stress [Unknown]
  - Malaise [Unknown]
  - Fatigue [Unknown]
